FAERS Safety Report 8123455-8 (Version None)
Quarter: 2012Q1

REPORT INFORMATION
  Report Type: 
  Country: None (occurrence: None)
  Receive Date: 20120208
  Receipt Date: 20120130
  Transmission Date: 20120608
  Serious: Yes (Hospitalization, Other)
  Sender: FDA-Public Use
  Company Number: PHHY2012DE002583

PATIENT
  Sex: Female
  Weight: 59 kg

DRUGS (5)
  1. METAMIZOLE [Concomitant]
     Indication: PAIN
     Route: 065
  2. AFINITOR [Suspect]
     Indication: RENAL CELL CARCINOMA
     Dosage: 10 MG, PER DAY
     Route: 048
     Dates: start: 20110610, end: 20111223
  3. STEROIDS NOS [Concomitant]
     Dosage: 1333 MG, PREDNISOLONE EQUIVALENT
     Route: 048
  4. PROTON PUMP INHIBITORS [Concomitant]
  5. OMEPRAZOLE [Concomitant]
     Indication: ABDOMINAL DISCOMFORT
     Dosage: 40 MG, DAILY
     Route: 048

REACTIONS (7)
  - OEDEMA PERIPHERAL [None]
  - PULMONARY OEDEMA [None]
  - COUGH [None]
  - CARDIAC FAILURE CONGESTIVE [None]
  - HYPERTENSION [None]
  - DILATATION VENTRICULAR [None]
  - DYSPNOEA [None]
